FAERS Safety Report 8809654 (Version 1)
Quarter: 2012Q4

REPORT INFORMATION
  Report Type: 
  Country: US (occurrence: US)
  Receive Date: 20120926
  Receipt Date: 20120926
  Transmission Date: 20130627
  Serious: No
  Sender: FDA-Public Use
  Company Number: US-MYLANLABS-2012S1004286

PATIENT
  Age: 53 Year
  Sex: Female

DRUGS (4)
  1. FLUOXETINE HYDROCHLORIDE TABLETS [Suspect]
     Indication: DEPRESSION
     Route: 048
     Dates: start: 20120117, end: 201202
  2. FLUOXETINE HYDROCHLORIDE TABLETS [Suspect]
     Indication: DEPRESSION
     Route: 048
     Dates: start: 20120117, end: 201202
  3. FLUOXETINE HYDROCHLORIDE TABLETS [Suspect]
     Indication: DEPRESSION
     Route: 048
     Dates: start: 201202
  4. MULTIVITAMINS [Concomitant]
     Route: 048

REACTIONS (2)
  - Urticaria [Not Recovered/Not Resolved]
  - Rash [Not Recovered/Not Resolved]
